FAERS Safety Report 20030380 (Version 4)
Quarter: 2022Q3

REPORT INFORMATION
  Report Type: Spontaneous
  Country: US (occurrence: US)
  Receive Date: 20211103
  Receipt Date: 20220711
  Transmission Date: 20221027
  Serious: No
  Sender: FDA-Public Use
  Company Number: US-LUPIN PHARMACEUTICALS INC.-2021-21053

PATIENT
  Sex: Female

DRUGS (2)
  1. ALBUTEROL SULFATE [Suspect]
     Active Substance: ALBUTEROL SULFATE
     Indication: Dyspnoea
     Dosage: UNK
  2. PRIMATENE [Concomitant]
     Active Substance: EPHEDRINE HYDROCHLORIDE\GUAIFENESIN
     Indication: Dyspnoea
     Dosage: UNK

REACTIONS (2)
  - Device delivery system issue [Unknown]
  - No adverse event [Unknown]
